FAERS Safety Report 9595955 (Version 1)
Quarter: 2013Q4

REPORT INFORMATION
  Report Type: Spontaneous
  Country: DE (occurrence: DE)
  Receive Date: 20131004
  Receipt Date: 20131004
  Transmission Date: 20140711
  Serious: Yes (Death, Life-Threatening, Hospitalization)
  Sender: FDA-Public Use
  Company Number: DE-TEVA-434773GER

PATIENT
  Age: 9 Week
  Sex: Male

DRUGS (3)
  1. VINCRISTIN [Suspect]
     Indication: RHABDOID TUMOUR
     Route: 042
     Dates: start: 20130619
  2. ACTINOMYCIN-D [Suspect]
     Indication: RHABDOID TUMOUR
     Dosage: 12.5 MICROG/KG ON DAY 1 AND 2, EACH
     Route: 042
     Dates: start: 20130619, end: 20130620
  3. CYCLOPHOSPHAMID [Suspect]
     Indication: RHABDOID TUMOUR
     Route: 042
     Dates: start: 20130619

REACTIONS (2)
  - Venoocclusive disease [Fatal]
  - Septic shock [Fatal]
